FAERS Safety Report 18789051 (Version 1)
Quarter: 2021Q1

REPORT INFORMATION
  Report Type: Report from Study
  Country: US (occurrence: US)
  Receive Date: 20210126
  Receipt Date: 20210126
  Transmission Date: 20210419
  Serious: Yes (Hospitalization)
  Sender: FDA-Public Use
  Company Number: US-BAUSCH-BL-2021-003220

PATIENT
  Age: 54 Year
  Sex: Male

DRUGS (2)
  1. XIFAXAN [Suspect]
     Active Substance: RIFAXIMIN
     Indication: HEPATIC ENCEPHALOPATHY
     Route: 048
     Dates: end: 202011
  2. XIFAXAN [Suspect]
     Active Substance: RIFAXIMIN
     Dosage: DOSE DECREASED
     Route: 048
     Dates: start: 202011

REACTIONS (3)
  - Product communication issue [Unknown]
  - Inappropriate schedule of product administration [Unknown]
  - Foot fracture [Unknown]

NARRATIVE: CASE EVENT DATE: 202011
